FAERS Safety Report 13030231 (Version 2)
Quarter: 2017Q1

REPORT INFORMATION
  Report Type: Spontaneous
  Country: FR (occurrence: FR)
  Receive Date: 20161215
  Receipt Date: 20170327
  Transmission Date: 20170428
  Serious: Yes (Hospitalization)
  Sender: FDA-Public Use
  Company Number: FR-SA-2016SA228619

PATIENT
  Age: 90 Year
  Sex: Female

DRUGS (9)
  1. APROVEL [Suspect]
     Active Substance: IRBESARTAN
     Indication: HYPERTENSION
     Route: 048
     Dates: start: 201608
  2. AERIUS [Suspect]
     Active Substance: DESLORATADINE
     Indication: RHINITIS ALLERGIC
     Route: 048
     Dates: start: 201610, end: 20161114
  3. HEMIGOXINE NATIVELLE [Suspect]
     Active Substance: DIGOXIN
     Indication: ATRIAL FIBRILLATION
     Route: 048
     Dates: start: 2010
  4. ELIQUIS [Suspect]
     Active Substance: APIXABAN
     Indication: THROMBOSIS PROPHYLAXIS
     Route: 048
     Dates: start: 201601
  5. INEXIUM [Suspect]
     Active Substance: ESOMEPRAZOLE
     Route: 048
     Dates: start: 2010, end: 201612
  6. SEROPLEX [Suspect]
     Active Substance: ESCITALOPRAM OXALATE
     Route: 048
     Dates: start: 2010, end: 201612
  7. LOPERAMIDE [Suspect]
     Active Substance: LOPERAMIDE
     Route: 048
     Dates: start: 2010
  8. GAVISCON [Suspect]
     Active Substance: ALUMINUM HYDROXIDE\MAGNESIUM CARBONATE
     Indication: PRODUCT USED FOR UNKNOWN INDICATION
     Route: 048
     Dates: start: 201608
  9. AERIUS [Suspect]
     Active Substance: DESLORATADINE
     Indication: RHINITIS ALLERGIC
     Route: 048

REACTIONS (1)
  - Acute cutaneous lupus erythematosus [Recovered/Resolved]

NARRATIVE: CASE EVENT DATE: 201610
